FAERS Safety Report 9895158 (Version 1)
Quarter: 2014Q1

REPORT INFORMATION
  Report Type: Spontaneous
  Country: US (occurrence: US)
  Receive Date: 20140213
  Receipt Date: 20140213
  Transmission Date: 20141002
  Serious: No
  Sender: FDA-Public Use
  Company Number: US-BRISTOL-MYERS SQUIBB COMPANY-18920579

PATIENT
  Age: 57 Year
  Sex: Female
  Weight: 132.88 kg

DRUGS (6)
  1. ABATACEPT SUBQ INJECTION 125MG/ML [Suspect]
     Route: 058
  2. SYNTHROID [Concomitant]
     Dosage: TAB
  3. NABUMETONE [Concomitant]
     Dosage: TAB
  4. LISINOPRIL + HCTZ [Concomitant]
     Dosage: TAB 10-12.5
  5. MULTIVITAMIN [Concomitant]
     Dosage: TAB
  6. LEVOFLOXACIN [Concomitant]
     Indication: BACK PAIN

REACTIONS (3)
  - Back pain [Unknown]
  - Swollen tongue [Unknown]
  - Stomatitis [Unknown]
